FAERS Safety Report 7292763-5 (Version None)
Quarter: 2011Q1

REPORT INFORMATION
  Report Type: 
  Country: None (occurrence: None)
  Receive Date: 20110203
  Receipt Date: 20090618
  Transmission Date: 20110831
  Serious: No
  Sender: FDA-Public Use
  Company Number: 2009-00067

PATIENT
  Age: 39 Year
  Sex: Female
  Weight: 58.9676 kg

DRUGS (6)
  1. ZICAM ALLERGY RELIEF GEL SWABS [Suspect]
     Dosage: 2 YEARS AGO
     Dates: end: 20090618
  2. ZICAM COLD REMEDY GEL SWABS [Suspect]
     Dosage: QID; 2 YEARS AGO
     Dates: end: 20090618
  3. ZICAM EXTREME CONGESTION RELIEF [Suspect]
     Dosage: QD, 2 YEARS AGO
     Dates: end: 20090618
  4. SYNTHROID [Concomitant]
  5. ZICAM INTENSE SINUS RELIEF [Suspect]
     Dosage: QD, 2 YEARS AGO
     Dates: end: 20090618
  6. ZICAM COLD REMEDY NASAL GEL [Suspect]
     Dosage: 2 YEARS AGO
     Dates: end: 20090618

REACTIONS (1)
  - ANOSMIA [None]
